FAERS Safety Report 24172422 (Version 1)
Quarter: 2024Q3

REPORT INFORMATION
  Report Type: Spontaneous
  Country: US (occurrence: US)
  Receive Date: 20240805
  Receipt Date: 20240805
  Transmission Date: 20241017
  Serious: No
  Sender: JOHNSON AND JOHNSON
  Company Number: US-JNJFOC-20240783105

PATIENT
  Age: 23 Year
  Sex: Female

DRUGS (22)
  1. SPRAVATO [Suspect]
     Active Substance: ESKETAMINE
     Indication: Product used for unknown indication
     Dosage: 1ST SPRAVATO TREATMENT
     Dates: start: 20240423, end: 20240703
  2. SPRAVATO [Suspect]
     Active Substance: ESKETAMINE
     Dosage: 2ND SPRAVATO TREATMENT
     Dates: start: 20240425
  3. SPRAVATO [Suspect]
     Active Substance: ESKETAMINE
     Dosage: 07/01/2024  RESTART TREATMENT
     Dates: start: 20240701
  4. SPRAVATO [Suspect]
     Active Substance: ESKETAMINE
     Dosage: 4TH SPRAVATO TREATMENT
     Dates: start: 20240703
  5. ZYRTEC [Concomitant]
     Active Substance: CETIRIZINE HYDROCHLORIDE
     Route: 048
     Dates: start: 20231003
  6. KETOTIFEN FUMARATE [Concomitant]
     Active Substance: KETOTIFEN FUMARATE
     Route: 065
     Dates: start: 20231003
  7. NALTREXONE HYDROCHLORIDE [Concomitant]
     Active Substance: NALTREXONE HYDROCHLORIDE
     Route: 065
     Dates: start: 20231003
  8. AIMOVIG [Concomitant]
     Active Substance: ERENUMAB-AOOE
     Dosage: INSERT ONE HUNDRED TWENTY (120) MILLIGRAMS UNDER THE SKIN ONCE A MONTH
     Route: 058
     Dates: start: 20231003
  9. GABAPENTIN [Concomitant]
     Active Substance: GABAPENTIN
     Route: 048
     Dates: start: 20231003
  10. TRINTELLIX [Concomitant]
     Active Substance: VORTIOXETINE HYDROBROMIDE
     Dosage: TABLET BY MOUTH DAILY
     Route: 048
     Dates: start: 20240329
  11. LATUDA [Concomitant]
     Active Substance: LURASIDONE HYDROCHLORIDE
     Dosage: TABLET BY MOUTH DAILY
     Route: 048
     Dates: start: 20240329
  12. HYDROXYZINE HYDROCHLORIDE [Concomitant]
     Active Substance: HYDROXYZINE HYDROCHLORIDE
     Dosage: TABLET BY MOUTH AT BEDTIME
     Route: 048
     Dates: start: 20240329
  13. TRIAMCINOLONE ACETONIDE [Concomitant]
     Active Substance: TRIAMCINOLONE ACETONIDE
     Route: 061
     Dates: start: 20240401
  14. FAMOTIDINE [Concomitant]
     Active Substance: FAMOTIDINE
     Dosage: 40 MG/5 ML, TAKE FIVE (5) MILLILITERS BY MOUTH TWICE A DAY
     Route: 048
     Dates: start: 20240401
  15. MUPIROCIN [Concomitant]
     Active Substance: MUPIROCIN
     Route: 061
     Dates: start: 20240401
  16. EPINEPHRINE [Concomitant]
     Active Substance: EPINEPHRINE
     Dosage: 0.3 MG/0.3 ML, INJECT THREE TENTHS (0.3) MILLILITERS INJECTION AS NEEDED
     Dates: start: 20240401
  17. PYRIDOSTIGMINE BROMIDE [Concomitant]
     Active Substance: PYRIDOSTIGMINE BROMIDE
     Dosage: TAKE ONE HALF (0.5) TABLETS BY MOUTH TWICE A DAY AND ONE (1) TABLET TWICE A DAY AND ONE (1) TABLET T
     Route: 048
     Dates: start: 20240401
  18. UBRELVY [Concomitant]
     Active Substance: UBROGEPANT
     Dosage: TAKE ONE (1) TABLET BY MOUTH AS NEEDED
     Route: 048
     Dates: start: 20240401
  19. NALTREXONE [Concomitant]
     Active Substance: NALTREXONE
     Dates: start: 20240401
  20. CLOBETASOL PROPION [Concomitant]
     Dosage: 0.05%
     Route: 061
     Dates: start: 20240401
  21. ACETAMINOPHEN [Concomitant]
     Active Substance: ACETAMINOPHEN
     Dates: start: 20240401
  22. SODIUM CHLORIDE [Concomitant]
     Active Substance: SODIUM CHLORIDE
     Dosage: GIVE ONE (1) TABLET VIA G-TUBE DAILY
     Route: 048
     Dates: start: 20240401

REACTIONS (4)
  - Vomiting [Recovered/Resolved]
  - Hypoaesthesia [Recovered/Resolved]
  - Nausea [Recovering/Resolving]
  - Gastrointestinal disorder [Unknown]

NARRATIVE: CASE EVENT DATE: 20240425
